FAERS Safety Report 22180463 (Version 1)
Quarter: 2023Q2

REPORT INFORMATION
  Report Type: Spontaneous
  Country: US (occurrence: US)
  Receive Date: 20230406
  Receipt Date: 20230406
  Transmission Date: 20230722
  Serious: Yes (Other)
  Sender: FDA-Public Use
  Company Number: US-BAYER-2023A038308

PATIENT
  Age: 65 Year
  Sex: Male
  Weight: 179 kg

DRUGS (6)
  1. CLARITIN [Suspect]
     Active Substance: LORATADINE
     Indication: Seasonal allergy
     Dosage: 10 MG
     Route: 048
     Dates: start: 2014
  2. PRAVA [PRAVASTATIN SODIUM] [Concomitant]
     Indication: Hyperlipidaemia
     Dosage: 40 MG
     Route: 048
     Dates: start: 20210203, end: 20210203
  3. PRAVA [PRAVASTATIN SODIUM] [Concomitant]
     Indication: COVID-19
     Dosage: 40 UNK
     Route: 048
     Dates: start: 20210225
  4. HEPARIN [Concomitant]
     Active Substance: HEPARIN SODIUM
     Dosage: 5000 U
     Route: 058
  5. TOZINAMERAN [Concomitant]
     Active Substance: TOZINAMERAN
  6. ATSTAT-EB [Concomitant]
     Dosage: 100 ML

REACTIONS (1)
  - Prostate cancer stage II [None]
